FAERS Safety Report 17813282 (Version 1)
Quarter: 2020Q2

REPORT INFORMATION
  Report Type: Spontaneous
  Country: FR (occurrence: FR)
  Receive Date: 20200521
  Receipt Date: 20200521
  Transmission Date: 20200714
  Serious: Yes (Hospitalization)
  Sender: FDA-Public Use
  Company Number: NVSC2020FR137037

PATIENT
  Age: 88 Year
  Sex: Female
  Weight: 78 kg

DRUGS (12)
  1. ONDANSETRON [Suspect]
     Active Substance: ONDANSETRON
     Indication: PROPHYLAXIS OF NAUSEA AND VOMITING
     Dosage: 8 MG, UNKNOWN
     Route: 041
     Dates: start: 20200124
  2. SOLU-MEDROL [Suspect]
     Active Substance: METHYLPREDNISOLONE SODIUM SUCCINATE
     Indication: PROPHYLACTIC CHEMOTHERAPY
     Dosage: 80 MG, ONCE/SINGLE
     Route: 042
     Dates: start: 20200124
  3. CARBOPLATIN ACCORD [Suspect]
     Active Substance: CARBOPLATIN
     Indication: OVARIAN CANCER
     Dosage: 215 MG, CYCLICAL
     Route: 041
     Dates: start: 20190924
  4. SYMBICORT [Concomitant]
     Active Substance: BUDESONIDE\FORMOTEROL FUMARATE DIHYDRATE
     Indication: PRODUCT USED FOR UNKNOWN INDICATION
     Dosage: UNK UNK, UNKNOWN
     Route: 065
  5. INEXIUM [Concomitant]
     Active Substance: ESOMEPRAZOLE
     Indication: PRODUCT USED FOR UNKNOWN INDICATION
     Dosage: UNK UNK, UNKNOWN
     Route: 065
  6. AVASTIN [Suspect]
     Active Substance: BEVACIZUMAB
     Indication: OVARIAN CANCER
     Dosage: 820 MG, CYCLICAL
     Route: 041
     Dates: start: 20200124
  7. TAHOR [Concomitant]
     Active Substance: ATORVASTATIN CALCIUM
     Indication: PRODUCT USED FOR UNKNOWN INDICATION
     Dosage: UNK UNK, UNKNOWN
     Route: 065
  8. CORTANCYL [Concomitant]
     Active Substance: PREDNISONE
     Indication: PRODUCT USED FOR UNKNOWN INDICATION
     Dosage: UNK UNK, UNKNOWN
     Route: 065
  9. SPIRIVA [Concomitant]
     Active Substance: TIOTROPIUM BROMIDE MONOHYDRATE
     Indication: PRODUCT USED FOR UNKNOWN INDICATION
     Dosage: UNK UNK, UNKNOWN
     Route: 065
  10. ALDACTAZINE [Concomitant]
     Active Substance: ALTHIAZIDE\SPIRONOLACTONE
     Indication: PRODUCT USED FOR UNKNOWN INDICATION
     Dosage: UNK UNK, UNKNOWN
     Route: 065
  11. APROVEL [Concomitant]
     Active Substance: IRBESARTAN
     Indication: PRODUCT USED FOR UNKNOWN INDICATION
     Dosage: UNK UNK, UNKNOWN
     Route: 065
  12. POLARAMINE [Suspect]
     Active Substance: DEXCHLORPHENIRAMINE MALEATE
     Indication: PROPHYLACTIC CHEMOTHERAPY
     Dosage: 5 MG, ONCE/SINGLE
     Route: 042
     Dates: start: 20200124

REACTIONS (4)
  - Hypersensitivity [Recovered/Resolved]
  - Dyspnoea [Recovered/Resolved]
  - Malaise [Recovered/Resolved]
  - Erythema [Recovered/Resolved]

NARRATIVE: CASE EVENT DATE: 20200124
